FAERS Safety Report 4695309-0 (Version None)
Quarter: 2005Q2

REPORT INFORMATION
  Report Type: 
  Country: None (occurrence: None)
  Receive Date: 20050126
  Receipt Date: 20050126
  Transmission Date: 20051028
  Serious: Yes (Other)
  Sender: FDA-Public Use
  Company Number: None

PATIENT
  Age: 73 Year
  Sex: Female
  Weight: 78.9259 kg

DRUGS (1)
  1. GENERIC VOLTAREN [Suspect]

REACTIONS (3)
  - FEELING JITTERY [None]
  - RASH ERYTHEMATOUS [None]
  - RASH PRURITIC [None]
